FAERS Safety Report 5831997-0 (Version None)
Quarter: 2008Q3

REPORT INFORMATION
  Report Type: 
  Country: None (occurrence: None)
  Receive Date: 20080731
  Receipt Date: 20080723
  Transmission Date: 20090109
  Serious: Yes (Hospitalization, Other)
  Sender: FDA-Public Use
  Company Number: 056-21880-08041279

PATIENT
  Age: 69 Year
  Sex: Female

DRUGS (4)
  1. REVLIMID [Suspect]
     Indication: MULTIPLE MYELOMA
     Dosage: 10 MG, DAILY, ORAL
     Route: 048
     Dates: end: 20080402
  2. INSULIN (INSULIN) [Concomitant]
  3. ENALAPRIL MALEATE [Concomitant]
  4. GRANOCYTE [Concomitant]

REACTIONS (5)
  - CERVICAL MYELOPATHY [None]
  - CONSTIPATION [None]
  - HYPOGLYCAEMIA [None]
  - ROAD TRAFFIC ACCIDENT [None]
  - SUBILEUS [None]
